FAERS Safety Report 14840665 (Version 1)
Quarter: 2018Q2

REPORT INFORMATION
  Report Type: Spontaneous
  Country: DE (occurrence: DE)
  Receive Date: 20180503
  Receipt Date: 20180503
  Transmission Date: 20180711
  Serious: Yes (Hospitalization)
  Sender: FDA-Public Use
  Company Number: DE-SUN PHARMACEUTICAL INDUSTRIES LTD-2018RR-171551

PATIENT
  Age: 43 Year
  Sex: Female

DRUGS (4)
  1. PARACETAMOL, ACETYLSALICYLIC ACID, CAFFEINE [Suspect]
     Active Substance: ACETAMINOPHEN\ASPIRIN\CAFFEINE
     Indication: PRODUCT USED FOR UNKNOWN INDICATION
     Dosage: UNK
     Route: 065
  2. AMLODIPINE [Concomitant]
     Active Substance: AMLODIPINE BESYLATE
     Indication: PRODUCT USED FOR UNKNOWN INDICATION
     Dosage: 5 MG, 1-0-0-0
     Route: 065
  3. IBUPROFEN. [Suspect]
     Active Substance: IBUPROFEN
     Indication: PRODUCT USED FOR UNKNOWN INDICATION
     Dosage: 400 MG, NK ()
     Route: 065
  4. FLUTICASONE FUROATE, VILANTEROL [Concomitant]
     Indication: PRODUCT USED FOR UNKNOWN INDICATION
     Dosage: 75/22 MICROGRAMES, 1-0-0-0 ()
     Route: 065

REACTIONS (6)
  - Haematochezia [Unknown]
  - Accidental overdose [Unknown]
  - Pain [Unknown]
  - Labelled drug-drug interaction medication error [Unknown]
  - Extra dose administered [Unknown]
  - Medication monitoring error [Unknown]
